FAERS Safety Report 8495012-5 (Version None)
Quarter: 2012Q3

REPORT INFORMATION
  Report Type: 
  Country: None (occurrence: None)
  Receive Date: 20120709
  Receipt Date: 20120627
  Transmission Date: 20120928
  Serious: Yes (Other)
  Sender: FDA-Public Use
  Company Number: CA-JNJFOC-20120614180

PATIENT
  Sex: Female
  Weight: 71.5 kg

DRUGS (1)
  1. REMICADE [Suspect]
     Indication: CROHN'S DISEASE
     Dosage: ONCE EVERY 4-5 WEEKS
     Route: 042
     Dates: start: 20110303

REACTIONS (1)
  - CELLULITIS [None]
